FAERS Safety Report 5119555-7 (Version None)
Quarter: 2006Q3

REPORT INFORMATION
  Report Type: 
  Country: None (occurrence: None)
  Receive Date: 20060928
  Receipt Date: 20060913
  Transmission Date: 20061208
  Serious: Yes (Other)
  Sender: FDA-Public Use
  Company Number: 2006RR-03720

PATIENT
  Age: 17 Year
  Sex: Male

DRUGS (1)
  1. RANITIDINE [Suspect]
     Indication: GASTRIC DISORDER

REACTIONS (1)
  - BALLISMUS [None]
